FAERS Safety Report 8844581 (Version 1)
Quarter: 2012Q4

REPORT INFORMATION
  Report Type: Spontaneous
  Country: CA (occurrence: None)
  Receive Date: 20121012
  Receipt Date: 20121012
  Transmission Date: 20130627
  Serious: Yes (Death, Other)
  Sender: FDA-Public Use
  Company Number: 2012033569

PATIENT
  Age: 58 Year
  Sex: Female

DRUGS (3)
  1. IVIG [Suspect]
     Indication: HEMOPHAGOCYTIC SYNDROME
  2. CORTICOSTEROIDS [Suspect]
  3. CYCLOSPORINE [Suspect]

REACTIONS (2)
  - Multi-organ failure [None]
  - General physical health deterioration [None]
